FAERS Safety Report 13336134 (Version 1)
Quarter: 2017Q1

REPORT INFORMATION
  Report Type: Spontaneous
  Country: US (occurrence: US)
  Receive Date: 20170315
  Receipt Date: 20170315
  Transmission Date: 20170428
  Serious: Yes (Other)
  Sender: FDA-Public Use
  Company Number: US-AMGEN-USASP2017035289

PATIENT
  Sex: Female

DRUGS (4)
  1. NABUMETONE. [Concomitant]
     Active Substance: NABUMETONE
     Dosage: UNK
     Route: 065
  2. ENBREL [Suspect]
     Active Substance: ETANERCEPT
     Indication: ARTHRITIS
  3. ENBREL [Suspect]
     Active Substance: ETANERCEPT
     Indication: SERONEGATIVE ARTHRITIS
  4. ENBREL [Suspect]
     Active Substance: ETANERCEPT
     Indication: ANKYLOSING SPONDYLITIS
     Dosage: 50 MG, QWK
     Route: 065
     Dates: start: 2004

REACTIONS (8)
  - Salivary hypersecretion [Unknown]
  - Stress [Unknown]
  - Inflammatory bowel disease [Unknown]
  - Dysgeusia [Unknown]
  - Gastroenteritis [Unknown]
  - Off label use [Unknown]
  - Gastrointestinal disorder [Unknown]
  - Reflux laryngitis [Unknown]

NARRATIVE: CASE EVENT DATE: 2004
